FAERS Safety Report 6266221-0 (Version None)
Quarter: 2009Q3

REPORT INFORMATION
  Report Type: 
  Country: None (occurrence: None)
  Receive Date: 20090713
  Receipt Date: 20090701
  Transmission Date: 20100115
  Serious: Yes (Other)
  Sender: FDA-Public Use
  Company Number: GR-ROCHE-641821

PATIENT
  Age: 14 Year
  Sex: Female

DRUGS (1)
  1. ROACCUTAN [Suspect]
     Indication: ACNE
     Dosage: FREQUENCY: DAILY. DOSAGE: 10 MG IN THE MORNING AND 20 MG IN THE EVENING.
     Route: 048
     Dates: start: 20081120, end: 20090523

REACTIONS (3)
  - HAEMATOCRIT DECREASED [None]
  - HAEMOGLOBIN DECREASED [None]
  - SERUM FERRITIN DECREASED [None]
